FAERS Safety Report 5634075-9 (Version None)
Quarter: 2008Q1

REPORT INFORMATION
  Report Type: 
  Country: None (occurrence: None)
  Receive Date: 20080219
  Receipt Date: 20080131
  Transmission Date: 20080703
  Serious: Yes (Hospitalization)
  Sender: FDA-Public Use
  Company Number: 2007JP004998

PATIENT
  Age: 55 Year
  Sex: Female
  Weight: 52.9 kg

DRUGS (9)
  1. TACROLIMUS [Suspect]
     Indication: RHEUMATOID ARTHRITIS
     Dosage: 3 MG, D, ORAL
     Route: 048
     Dates: start: 20070914, end: 20071029
  2. TACROLIMUS [Suspect]
     Indication: RHEUMATOID ARTHRITIS
     Dosage: 3 MG, D, ORAL
     Route: 048
     Dates: start: 20071120
  3. METOLATE (METHOTREXATE SODIUM) TABLET [Concomitant]
  4. BONALON (ALENDRONIC ACID) TABLET [Concomitant]
  5. FOLIAMIN (FOLIC ACID) TABLET [Concomitant]
  6. MEDROL [Concomitant]
  7. PROTECADIN (LAFUTIDINE) TABLET [Concomitant]
  8. VOLTAREN  CAPSULE [Concomitant]
  9. MOHRUS (KETOPROFEN) TAPE [Concomitant]

REACTIONS (1)
  - MELANOCYTIC NAEVUS [None]
